FAERS Safety Report 20763349 (Version 2)
Quarter: 2022Q3

REPORT INFORMATION
  Report Type: Spontaneous
  Country: US (occurrence: US)
  Receive Date: 20220428
  Receipt Date: 20220708
  Transmission Date: 20221027
  Serious: Yes (Death)
  Sender: FDA-Public Use
  Company Number: US-PFIZER INC-202200520603

PATIENT
  Age: 59 Year
  Sex: Female

DRUGS (1)
  1. IBRANCE [Suspect]
     Active Substance: PALBOCICLIB
     Dosage: 125 MG

REACTIONS (4)
  - Cerebrovascular accident [Fatal]
  - Neoplasm progression [Fatal]
  - Platelet count decreased [Unknown]
  - Abdominal pain upper [Unknown]
